FAERS Safety Report 6017828-7 (Version None)
Quarter: 2008Q4

REPORT INFORMATION
  Report Type: 
  Country: None (occurrence: None)
  Receive Date: 20081223
  Receipt Date: 20081216
  Transmission Date: 20090506
  Serious: Yes (Death, Life-Threatening, Hospitalization)
  Sender: FDA-Public Use
  Company Number: HK-ROCHE-600023

PATIENT
  Sex: Male
  Weight: 71.4 kg

DRUGS (3)
  1. CAPECITABINE [Suspect]
     Dosage: FREQUENCY REPORTED AS DAY 1 TO DAY 14 OF THREE WEEK CYCLE.
     Route: 048
     Dates: start: 20080908, end: 20081129
  2. ERLOTINIB [Suspect]
     Dosage: FREQUENCY REPORTED AS DAY 1 TO DAY 14 AT ALTERNATE DAY AND ON DAY 15 TO DAY21 DAILY.
     Route: 048
     Dates: start: 20080908, end: 20081129
  3. OXALIPLATIN [Suspect]
     Dosage: FORM REPORTED AS IV INFUSION. TEMPORARILY INTERRUPTED.
     Route: 042
     Dates: start: 20080908, end: 20081129

REACTIONS (3)
  - CARDIAC ARREST [None]
  - DEATH [None]
  - DIARRHOEA [None]
